FAERS Safety Report 5910717-5 (Version None)
Quarter: 2008Q4

REPORT INFORMATION
  Report Type: 
  Country: None (occurrence: None)
  Receive Date: 20081007
  Receipt Date: 20080328
  Transmission Date: 20090506
  Serious: No
  Sender: FDA-Public Use
  Company Number: US-ASTRAZENECA-2008UW06258

PATIENT
  Age: 57 Year
  Sex: Female
  Weight: 121.6 kg

DRUGS (4)
  1. ARIMIDEX [Suspect]
     Indication: BREAST CANCER
     Route: 048
     Dates: start: 20080201
  2. ARIMIDEX [Suspect]
     Route: 048
     Dates: start: 20080328
  3. DIOVAN [Concomitant]
  4. POTASSIUM CHLORIDE [Concomitant]

REACTIONS (3)
  - CYSTITIS [None]
  - MUSCULOSKELETAL PAIN [None]
  - UPPER RESPIRATORY TRACT INFECTION [None]
